FAERS Safety Report 4516674-0 (Version None)
Quarter: 2004Q4

REPORT INFORMATION
  Report Type: 
  Country: None (occurrence: None)
  Receive Date: 20041202
  Receipt Date: 20021105
  Transmission Date: 20050328
  Serious: Yes (Other)
  Sender: FDA-Public Use
  Company Number: US-BRISTOL-MYERS SQUIBB COMPANY-12104337

PATIENT
  Age: 54 Year
  Sex: Male
  Weight: 76 kg

DRUGS (12)
  1. SERZONE [Suspect]
     Indication: DEPRESSION
     Route: 048
     Dates: start: 19960201
  2. SERTRALINE HCL [Concomitant]
  3. PAROXETINE HCL [Concomitant]
  4. IMIPRAMINE HCL [Concomitant]
  5. TRAZODONE HCL [Concomitant]
  6. PAXIL [Concomitant]
  7. RELAFEN [Concomitant]
  8. CEPHALEXIN HCL [Concomitant]
  9. IMIPRAM TAB [Concomitant]
  10. DIAZEPAM [Concomitant]
  11. OCUFLOX [Concomitant]
  12. HYDROCODONE + ACETAMINOPHEN [Concomitant]

REACTIONS (9)
  - ANGINA PECTORIS [None]
  - ARTHRALGIA [None]
  - AUTOIMMUNE HEPATITIS [None]
  - FATIGUE [None]
  - HEPATIC CIRRHOSIS [None]
  - HEPATIC FIBROSIS [None]
  - MEMORY IMPAIRMENT [None]
  - PROTHROMBIN TIME PROLONGED [None]
  - TREMOR [None]
